FAERS Safety Report 7528556-0 (Version None)
Quarter: 2011Q2

REPORT INFORMATION
  Report Type: 
  Country: None (occurrence: None)
  Receive Date: 20110607
  Receipt Date: 20110530
  Transmission Date: 20111010
  Serious: Yes (Other)
  Sender: FDA-Public Use
  Company Number: BR-SANOFI-AVENTIS-2011SA021067

PATIENT
  Age: 70 Year
  Sex: Female

DRUGS (10)
  1. METFORMIN HCL [Concomitant]
  2. ASPIRIN [Concomitant]
  3. LANTUS [Suspect]
     Route: 058
     Dates: end: 20110101
  4. METFORMIN HCL [Concomitant]
  5. PASALIX [Concomitant]
  6. LANTUS [Suspect]
     Route: 058
  7. AUTOPEN 24 [Suspect]
  8. LANTUS [Suspect]
     Route: 058
     Dates: start: 20110101, end: 20110101
  9. ANGIPRESS [Concomitant]
  10. AMLODIPINE/VALSARTAN [Concomitant]

REACTIONS (12)
  - CEREBROVASCULAR ACCIDENT [None]
  - STRESS [None]
  - HEART RATE INCREASED [None]
  - VISION BLURRED [None]
  - HYPERTENSION [None]
  - INJECTION SITE DISCOMFORT [None]
  - HYPERGLYCAEMIA [None]
  - INJECTION SITE PAIN [None]
  - EYE DISORDER [None]
  - NERVOUSNESS [None]
  - EYE HAEMORRHAGE [None]
  - UNEVALUABLE EVENT [None]
